FAERS Safety Report 5835009-4 (Version None)
Quarter: 2008Q3

REPORT INFORMATION
  Report Type: 
  Country: None (occurrence: None)
  Receive Date: 20080801
  Receipt Date: 20080728
  Transmission Date: 20090109
  Serious: Yes (Death)
  Sender: FDA-Public Use
  Company Number: 2008-175518-NL

PATIENT
  Sex: Male

DRUGS (11)
  1. MIRTAZAPINE [Suspect]
     Dosage: 15 MG/30 MG
     Dates: start: 20050523, end: 20050524
  2. MIRTAZAPINE [Suspect]
     Dosage: 15 MG/30 MG
     Dates: start: 20050525, end: 20050528
  3. CITALOPRAM HYDROBROMIDE [Suspect]
     Dosage: 20 MG/30 MG/40 MG/60 MG
     Dates: start: 20050506, end: 20050511
  4. CITALOPRAM HYDROBROMIDE [Suspect]
     Dosage: 20 MG/30 MG/40 MG/60 MG
     Dates: start: 20050512, end: 20050517
  5. CITALOPRAM HYDROBROMIDE [Suspect]
     Dosage: 20 MG/30 MG/40 MG/60 MG
     Dates: start: 20050518, end: 20050525
  6. CITALOPRAM HYDROBROMIDE [Suspect]
     Dosage: 20 MG/30 MG/40 MG/60 MG
     Dates: start: 20050526, end: 20050528
  7. IRBESARTAN [Concomitant]
  8. PANTOPRAZOLE SODIUM [Concomitant]
  9. TRIMIPRAMINE MALEATE [Concomitant]
  10. ATMADISC [Concomitant]
  11. NYSTATIN [Concomitant]

REACTIONS (2)
  - ASPHYXIA [None]
  - COMPLETED SUICIDE [None]
